FAERS Safety Report 11609367 (Version 1)
Quarter: 2015Q3

REPORT INFORMATION
  Report Type: Spontaneous
  Country: US (occurrence: US)
  Receive Date: 20150916
  Receipt Date: 20150916
  Transmission Date: 20151125
  Serious: No
  Sender: FDA-Public Use
  Company Number: US-ELI_LILLY_AND_COMPANY-US201310001598

PATIENT
  Sex: Female

DRUGS (1)
  1. HUMALOG MIX75/25 [Suspect]
     Active Substance: INSULIN LISPRO
     Indication: DIABETES MELLITUS
     Dosage: 46 U, BID
     Route: 065

REACTIONS (5)
  - Abdominal pain upper [Unknown]
  - Malaise [Unknown]
  - Nervousness [Unknown]
  - Intentional product misuse [Unknown]
  - Vomiting [Unknown]
